FAERS Safety Report 19646686 (Version 25)
Quarter: 2025Q2

REPORT INFORMATION
  Report Type: Report from Study
  Country: US (occurrence: US)
  Receive Date: 20210802
  Receipt Date: 20250623
  Transmission Date: 20250716
  Serious: Yes (Hospitalization, Other)
  Sender: TAKEDA
  Company Number: US-TAKEDA-2021TUS046770

PATIENT
  Age: 49 Year
  Sex: Male
  Weight: 126 kg

DRUGS (31)
  1. HUMAN IMMUNOGLOBULIN G [Suspect]
     Active Substance: HUMAN IMMUNOGLOBULIN G
     Indication: Myasthenia gravis
     Dosage: UNK UNK, Q4WEEKS
     Dates: start: 20210315
  2. HUMAN IMMUNOGLOBULIN G [Suspect]
     Active Substance: HUMAN IMMUNOGLOBULIN G
     Dosage: 125 GRAM, Q4WEEKS
  3. HUMAN IMMUNOGLOBULIN G [Suspect]
     Active Substance: HUMAN IMMUNOGLOBULIN G
     Dosage: UNK UNK, Q4WEEKS
  4. HUMAN IMMUNOGLOBULIN G [Suspect]
     Active Substance: HUMAN IMMUNOGLOBULIN G
  5. HUMAN IMMUNOGLOBULIN G [Suspect]
     Active Substance: HUMAN IMMUNOGLOBULIN G
  6. HUMAN IMMUNOGLOBULIN G [Suspect]
     Active Substance: HUMAN IMMUNOGLOBULIN G
     Dosage: 110 GRAM, Q4WEEKS
  7. HUMAN IMMUNOGLOBULIN G [Suspect]
     Active Substance: HUMAN IMMUNOGLOBULIN G
     Dosage: 110 GRAM, Q3WEEKS
  8. MORPHINE [Suspect]
     Active Substance: MORPHINE
     Indication: Product used for unknown indication
  9. ACETAMINOPHEN [Concomitant]
     Active Substance: ACETAMINOPHEN
  10. EPINEPHRINE [Concomitant]
     Active Substance: EPINEPHRINE
  11. DIPHENHYDRAMINE [Concomitant]
     Active Substance: DIPHENHYDRAMINE
  12. FISH OIL [Concomitant]
     Active Substance: FISH OIL
  13. PYRIDOSTIGMINE BROMIDE [Concomitant]
     Active Substance: PYRIDOSTIGMINE BROMIDE
  14. PREDNISONE [Concomitant]
     Active Substance: PREDNISONE
  15. FAMOTIDINE [Concomitant]
     Active Substance: FAMOTIDINE
  16. VITAMIN C [Concomitant]
     Active Substance: ASCORBIC ACID
  17. VITAMIN A [Concomitant]
     Active Substance: VITAMIN A
  18. SODIUM CHLORIDE [Concomitant]
     Active Substance: SODIUM CHLORIDE
  19. ASPIRIN [Concomitant]
     Active Substance: ASPIRIN
  20. AZATHIOPRINE [Concomitant]
     Active Substance: AZATHIOPRINE
  21. SIMVASTATIN [Concomitant]
     Active Substance: SIMVASTATIN
  22. VITAMIN D3 [Concomitant]
     Active Substance: CHOLECALCIFEROL
  23. SODIUM CHLORIDE [Concomitant]
     Active Substance: SODIUM CHLORIDE
  24. HEPARIN [Concomitant]
     Active Substance: HEPARIN SODIUM
  25. HEPARIN SODIUM [Concomitant]
     Active Substance: HEPARIN SODIUM
  26. Lmx [Concomitant]
  27. DIPHENHYDRAMINE HYDROCHLORIDE [Concomitant]
     Active Substance: DIPHENHYDRAMINE HYDROCHLORIDE
  28. PYRIDOSTIGMINE [Concomitant]
     Active Substance: PYRIDOSTIGMINE
  29. PANTOPRAZOLE SODIUM [Concomitant]
     Active Substance: PANTOPRAZOLE SODIUM
  30. AMOXICILLIN [Concomitant]
     Active Substance: AMOXICILLIN
  31. VYVGART [Concomitant]
     Active Substance: EFGARTIGIMOD ALFA-FCAB

REACTIONS (37)
  - Abscess jaw [Unknown]
  - Myasthenia gravis [Unknown]
  - Dehydration [Unknown]
  - Eye infection [Unknown]
  - Poor quality sleep [Unknown]
  - Eyelid ptosis [Unknown]
  - Mastication disorder [Unknown]
  - Diplopia [Recovered/Resolved]
  - Heart rate abnormal [Unknown]
  - Dysphagia [Unknown]
  - Device occlusion [Recovered/Resolved]
  - Device alarm issue [Recovered/Resolved]
  - Gingivitis [Unknown]
  - Allergy to immunoglobulin therapy [Unknown]
  - Product use in unapproved indication [Unknown]
  - Product dose omission issue [Unknown]
  - Facial pain [Unknown]
  - Sinus congestion [Unknown]
  - Paranasal sinus discomfort [Unknown]
  - Hernia [Unknown]
  - Eczema [Not Recovered/Not Resolved]
  - Swelling face [Unknown]
  - Feeling abnormal [Unknown]
  - Nasal congestion [Unknown]
  - Vision blurred [Unknown]
  - Muscular weakness [Unknown]
  - Insomnia [Unknown]
  - Infusion site bruising [Unknown]
  - Asthenia [Unknown]
  - Rash [Unknown]
  - Abdominal pain upper [Unknown]
  - Flushing [Unknown]
  - Tremor [Unknown]
  - Headache [Recovered/Resolved]
  - Fatigue [Unknown]
  - Pyrexia [Recovered/Resolved]
  - Nausea [Unknown]

NARRATIVE: CASE EVENT DATE: 20210315
